FAERS Safety Report 8377231-1 (Version None)
Quarter: 2012Q2

REPORT INFORMATION
  Report Type: 
  Country: None (occurrence: None)
  Receive Date: 20120522
  Receipt Date: 20120511
  Transmission Date: 20120825
  Serious: No
  Sender: FDA-Public Use
  Company Number: CH-US-EMD SERONO, INC.-7131708

PATIENT
  Sex: Female

DRUGS (5)
  1. CORTISONE SALVE [Concomitant]
     Indication: ADVERSE EVENT
     Dates: start: 20110101
  2. REBIF [Suspect]
     Indication: MULTIPLE SCLEROSIS
     Route: 058
     Dates: start: 20080606, end: 20100831
  3. REBIF [Suspect]
     Route: 058
     Dates: start: 20100831
  4. CALENDULA SALVE [Concomitant]
     Indication: ADVERSE EVENT
     Dates: start: 20110101
  5. RESCUE SALVE [Concomitant]
     Indication: ADVERSE EVENT
     Dates: start: 20110101

REACTIONS (2)
  - INJECTION SITE NECROSIS [None]
  - SKIN DISORDER [None]
